FAERS Safety Report 12126582 (Version 1)
Quarter: 2016Q1

REPORT INFORMATION
  Report Type: Spontaneous
  Country: CH (occurrence: CH)
  Receive Date: 20160229
  Receipt Date: 20160229
  Transmission Date: 20160526
  Serious: Yes (Hospitalization)
  Sender: FDA-Public Use
  Company Number: CH-PFIZER INC-2016113558

PATIENT
  Age: 63 Year
  Sex: Male

DRUGS (17)
  1. ZYPREXA [Interacting]
     Active Substance: OLANZAPINE
     Dosage: 7.5 MG, DAILY
     Dates: start: 20150811, end: 20150812
  2. TEMESTA /00273201/ [Concomitant]
     Active Substance: LORAZEPAM
     Dosage: 2 UNK, UNK
     Dates: start: 20150721, end: 20150724
  3. TEMESTA /00273201/ [Concomitant]
     Active Substance: LORAZEPAM
     Dosage: 1.5 UNK, UNK
     Dates: start: 20150725, end: 20150802
  4. VENLAFAXIN PFIZER [Suspect]
     Active Substance: VENLAFAXINE HYDROCHLORIDE
     Dosage: 37.5 MG, 1X/DAY
     Dates: start: 20150810, end: 20150817
  5. ZYPREXA [Interacting]
     Active Substance: OLANZAPINE
     Dosage: 10 UNK, UNK
     Dates: start: 20150710, end: 20150716
  6. REMERON [Interacting]
     Active Substance: MIRTAZAPINE
     Dosage: 15 MG, 1X/DAY
     Dates: start: 20150622, end: 20150628
  7. ZYPREXA [Interacting]
     Active Substance: OLANZAPINE
     Dosage: 5 MG, 1X/DAY
     Dates: start: 20150623, end: 20150624
  8. TEMESTA /00273201/ [Concomitant]
     Active Substance: LORAZEPAM
     Dosage: 2.5-4MG
     Dates: start: 20150811, end: 20150922
  9. ZYPREXA [Interacting]
     Active Substance: OLANZAPINE
     Dosage: 5 UNK, UNK
     Dates: start: 20150727, end: 20150810
  10. ZYPREXA [Interacting]
     Active Substance: OLANZAPINE
     Dosage: 7.5 UNK, UNK
     Dates: start: 20150717, end: 20150726
  11. REMERON [Interacting]
     Active Substance: MIRTAZAPINE
     Dosage: 30 MG, UNK
     Dates: start: 20150629, end: 20150817
  12. TEMESTA /00273201/ [Concomitant]
     Active Substance: LORAZEPAM
     Dosage: 2.5 MG, 1X/DAY
     Dates: start: 20150622, end: 20150720
  13. TEMESTA /00273201/ [Concomitant]
     Active Substance: LORAZEPAM
     Dosage: 1 UNK, UNK
     Dates: start: 20150803, end: 20150810
  14. TEMESTA /00273201/ [Concomitant]
     Active Substance: LORAZEPAM
     Dosage: 1.5 UNK, UNK
     Dates: start: 20150923
  15. ZYPREXA [Interacting]
     Active Substance: OLANZAPINE
     Dosage: 15 UNK, UNK
     Dates: start: 20150625, end: 20150709
  16. ZYPREXA [Interacting]
     Active Substance: OLANZAPINE
     Dosage: 15 UNK, UNK
     Dates: start: 20150813, end: 20150817
  17. NEXIUM [Concomitant]
     Active Substance: ESOMEPRAZOLE MAGNESIUM
     Dosage: 40 MG, UNK
     Dates: start: 20150622

REACTIONS (2)
  - Hallucination [Recovered/Resolved]
  - Drug interaction [Unknown]

NARRATIVE: CASE EVENT DATE: 201508
